FAERS Safety Report 7262197-8 (Version None)
Quarter: 2011Q1

REPORT INFORMATION
  Report Type: 
  Country: None (occurrence: None)
  Receive Date: 20110130
  Receipt Date: 20101113
  Transmission Date: 20110831
  Serious: No
  Sender: FDA-Public Use
  Company Number: US-ABBOTT-10P-163-0685421-00

PATIENT
  Age: 49 Year
  Sex: Male

DRUGS (6)
  1. HUMIRA [Suspect]
     Indication: PSORIATIC ARTHROPATHY
     Dates: start: 20101001
  2. PAXIL [Concomitant]
     Indication: TINNITUS
     Dosage: 20MG DAILY
     Route: 048
  3. AMBIEN [Concomitant]
     Indication: SLEEP DISORDER THERAPY
     Dosage: 10MG EVERY NIGHT
     Route: 048
  4. LORCET-HD [Concomitant]
     Indication: PAIN
     Dosage: 1-10/650 THREE TIMES DAILY AS NEEDED
     Route: 048
  5. SIMVASTATIN [Concomitant]
     Indication: BLOOD CHOLESTEROL ABNORMAL
     Dosage: UNKNOWN DOSAGE DAILY
     Route: 048
  6. LOSARTAN POTASSIUM [Concomitant]
     Indication: BLOOD PRESSURE
     Dosage: 40MG DAILY
     Route: 048

REACTIONS (1)
  - IMPAIRED HEALING [None]
